FAERS Safety Report 24629057 (Version 2)
Quarter: 2024Q4

REPORT INFORMATION
  Report Type: Spontaneous
  Country: AU (occurrence: AU)
  Receive Date: 20241118
  Receipt Date: 20241122
  Transmission Date: 20250115
  Serious: Yes (Life-Threatening, Hospitalization, Other)
  Sender: STRIDES
  Company Number: None

PATIENT
  Sex: Female

DRUGS (1)
  1. IBUPROFEN [Suspect]
     Active Substance: IBUPROFEN
     Indication: Product used for unknown indication
     Dosage: UNK
     Route: 064

REACTIONS (6)
  - Papillary muscle rupture [None]
  - Tricuspid valve incompetence [None]
  - Atrial septal defect [Recovering/Resolving]
  - Patent ductus arteriosus [Recovering/Resolving]
  - Pulmonary hypertension [Recovering/Resolving]
  - Foetal exposure during pregnancy [Unknown]
